FAERS Safety Report 5957494-X (Version None)
Quarter: 2008Q4

REPORT INFORMATION
  Report Type: 
  Country: None (occurrence: None)
  Receive Date: 20081114
  Receipt Date: 20081105
  Transmission Date: 20090506
  Serious: Yes (Hospitalization, Other)
  Sender: FDA-Public Use
  Company Number: WAES 0811USA00784

PATIENT
  Age: 55 Year
  Sex: Male
  Weight: 73.0291 kg

DRUGS (17)
  1. ISENTRESS [Suspect]
     Indication: HIV INFECTION
     Dosage: 400 MG/BIB/PO
     Route: 048
     Dates: start: 20080916
  2. ETRAVIRINE UNK [Suspect]
     Indication: HIV INFECTION
     Dosage: 200 MG/BID/PO
     Route: 048
     Dates: start: 20080916
  3. MARAVIROC UNK [Suspect]
     Indication: HIV INFECTION
     Dosage: 150 MG/BID/PO
     Route: 048
     Dates: start: 20080916
  4. DARUNAVIR UNK [Suspect]
     Indication: HIV INFECTION
     Dosage: 600 MG/BID/PO
     Route: 048
     Dates: start: 20080916
  5. NORVIR [Suspect]
     Indication: HIV INFECTION
     Dosage: 100 MG/BID/PO
     Route: 048
     Dates: start: 20080916
  6. IMODIUM [Concomitant]
  7. MEPRON [Concomitant]
  8. ATENOLOL [Concomitant]
  9. AZITHROMYCIN [Concomitant]
  10. DAPSONE [Concomitant]
  11. FLUCONAZOLE [Concomitant]
  12. GABAPENTIN [Concomitant]
  13. GEMFIBROZIL [Concomitant]
  14. HYDROXYZINE HYDROCHLORIDE [Concomitant]
  15. PENTAMIDINE ISETHIONATE [Concomitant]
  16. RANITIDINE [Concomitant]
  17. ZOLPIDEM TARTRATE [Concomitant]

REACTIONS (11)
  - ACTIVATED PARTIAL THROMBOPLASTIN TIME PROLONGED [None]
  - ASTHENIA [None]
  - BLOOD CREATININE INCREASED [None]
  - BLOOD HIV RNA INCREASED [None]
  - BLOOD UREA INCREASED [None]
  - DIARRHOEA [None]
  - EPISTAXIS [None]
  - GLOMERULAR FILTRATION RATE DECREASED [None]
  - HAEMOGLOBIN DECREASED [None]
  - PROTHROMBIN TIME PROLONGED [None]
  - WHITE BLOOD CELLS URINE POSITIVE [None]
